FAERS Safety Report 7447274-0 (Version None)
Quarter: 2011Q2

REPORT INFORMATION
  Report Type: 
  Country: None (occurrence: None)
  Receive Date: 20110429
  Receipt Date: 20101229
  Transmission Date: 20111010
  Serious: No
  Sender: FDA-Public Use
  Company Number: US-ASTRAZENECA-2010SE61242

PATIENT
  Age: 68 Year
  Sex: Male
  Weight: 79.4 kg

DRUGS (5)
  1. NEXIUM [Suspect]
     Route: 048
     Dates: start: 20101228
  2. PANTOPRAZOLE [Concomitant]
  3. EFFIENT [Concomitant]
  4. NEXIUM [Suspect]
     Route: 048
  5. CRESTOR [Concomitant]

REACTIONS (4)
  - CHEST PAIN [None]
  - GASTROOESOPHAGEAL REFLUX DISEASE [None]
  - ABDOMINAL PAIN UPPER [None]
  - DRUG DOSE OMISSION [None]
